FAERS Safety Report 25331839 (Version 4)
Quarter: 2025Q4

REPORT INFORMATION
  Report Type: Other
  Country: US (occurrence: US)
  Receive Date: 20250519
  Receipt Date: 20251231
  Transmission Date: 20260118
  Serious: No
  Sender: TRAVERE THERAPEUTICS
  Company Number: US-TRAVERE-2025TVT00710

PATIENT
  Age: 54 Year
  Sex: Male

DRUGS (1)
  1. FILSPARI [Suspect]
     Active Substance: SPARSENTAN
     Indication: IgA nephropathy
     Route: 048

REACTIONS (6)
  - Liver function test abnormal [Unknown]
  - Glomerular filtration rate abnormal [Recovered/Resolved]
  - Energy increased [Unknown]
  - Fluid retention [None]
  - Protein urine present [Unknown]
  - Product administration error [Unknown]
